FAERS Safety Report 7650972-7 (Version None)
Quarter: 2011Q3

REPORT INFORMATION
  Report Type: 
  Country: None (occurrence: None)
  Receive Date: 20110802
  Receipt Date: 20110726
  Transmission Date: 20111222
  Serious: Yes (Hospitalization, Other)
  Sender: FDA-Public Use
  Company Number: US-BAYER-201025374NA

PATIENT
  Age: 68 Year
  Sex: Male

DRUGS (4)
  1. BETASERON [Suspect]
     Dosage: BETAJECT
     Route: 058
     Dates: start: 20100511
  2. BETASERON [Suspect]
     Indication: SECONDARY PROGRESSIVE MULTIPLE SCLEROSIS
     Dosage: AS USED DOSE: UNK
     Route: 058
     Dates: start: 19940729, end: 20070903
  3. BETASERON [Suspect]
     Dosage: 8 MIU, QOD
     Route: 058
     Dates: start: 20110210, end: 20110722
  4. BETASERON [Suspect]
     Dosage: 8 MIU, QOD
     Route: 058
     Dates: end: 20110123

REACTIONS (13)
  - PNEUMONIA [None]
  - BODY TEMPERATURE INCREASED [None]
  - CYSTITIS [None]
  - PAIN IN EXTREMITY [None]
  - CHEST PAIN [None]
  - MUSCULAR WEAKNESS [None]
  - INJECTION SITE RASH [None]
  - HEART RATE INCREASED [None]
  - ANKLE FRACTURE [None]
  - OEDEMA PERIPHERAL [None]
  - MYOCARDIAL INFARCTION [None]
  - ERYTHEMA [None]
  - FALL [None]
